FAERS Safety Report 20656458 (Version 1)
Quarter: 2022Q1

REPORT INFORMATION
  Report Type: Spontaneous
  Country: US (occurrence: US)
  Receive Date: 20220331
  Receipt Date: 20220331
  Transmission Date: 20220423
  Serious: Yes (Other)
  Sender: FDA-Public Use
  Company Number: US-CELLTRION INC.-2022US003623

PATIENT

DRUGS (3)
  1. TRUXIMA [Suspect]
     Active Substance: RITUXIMAB-ABBS
     Indication: Immune thrombocytopenia
     Dosage: UNKNOWN DATE, PATIENT STARTED TRUXIMA FOR ACUTE ITP
  2. TRUXIMA [Suspect]
     Active Substance: RITUXIMAB-ABBS
     Dosage: 16FEB2020 AND 03FEB FOR TRUXIMA (375 MG PER M2 GMA 7 DAYS)
     Dates: start: 20200216
  3. TRUXIMA [Suspect]
     Active Substance: RITUXIMAB-ABBS
     Dosage: UNK (02MAR AND 09MAR)

REACTIONS (2)
  - Immune thrombocytopenia [Unknown]
  - Off label use [Unknown]
